FAERS Safety Report 10156194 (Version 3)
Quarter: 2014Q4

REPORT INFORMATION
  Report Type: Spontaneous
  Country: GB (occurrence: GB)
  Receive Date: 20140506
  Receipt Date: 20141121
  Transmission Date: 20150528
  Serious: Yes (Hospitalization, Other)
  Sender: FDA-Public Use
  Company Number: GB-009507513-1405GBR000898

PATIENT
  Age: 43 Year
  Sex: Male

DRUGS (1)
  1. PROPECIA [Suspect]
     Active Substance: FINASTERIDE
     Dosage: UNK
     Route: 048
     Dates: start: 2007, end: 201012

REACTIONS (33)
  - Gynaecomastia [Unknown]
  - Mental impairment [Unknown]
  - Ejaculation failure [Unknown]
  - Obsessive-compulsive disorder [Unknown]
  - Feminisation acquired [Unknown]
  - Palpitations [Unknown]
  - Testicular cyst [Unknown]
  - Gastric dilatation [Unknown]
  - Alopecia [Unknown]
  - Erectile dysfunction [Unknown]
  - Suicide attempt [Unknown]
  - Suicidal ideation [Unknown]
  - Genital disorder male [Unknown]
  - Quality of life decreased [Unknown]
  - Psychotic disorder [Unknown]
  - Dry skin [Unknown]
  - Feeling abnormal [Unknown]
  - Sexual dysfunction [Unknown]
  - Panic attack [Unknown]
  - Insomnia [Unknown]
  - Fat tissue increased [Unknown]
  - Oedema peripheral [Unknown]
  - Prostatomegaly [Unknown]
  - Loss of libido [Unknown]
  - Hormone level abnormal [Unknown]
  - Penis disorder [Unknown]
  - Testicular disorder [Unknown]
  - Negative thoughts [Unknown]
  - Adverse event [Unknown]
  - Depression [Unknown]
  - Amnesia [Unknown]
  - Weight increased [Unknown]
  - Personality change [Unknown]

NARRATIVE: CASE EVENT DATE: 2011
